FAERS Safety Report 4799957-9 (Version None)
Quarter: 2005Q4

REPORT INFORMATION
  Report Type: 
  Country: None (occurrence: None)
  Receive Date: 20051013
  Receipt Date: 20050922
  Transmission Date: 20060501
  Serious: Yes (Other)
  Sender: FDA-Public Use
  Company Number: ENT2005-0130

PATIENT
  Age: 68 Year
  Sex: Female

DRUGS (13)
  1. COMTAN [Suspect]
     Indication: PARKINSON'S DISEASE
     Dosage: 200 MG, QD, ORAL
     Route: 048
     Dates: start: 20050401, end: 20050701
  2. SINEMET [Concomitant]
  3. LORAX [Concomitant]
  4. LIORESAL [Concomitant]
  5. HALDOL [Concomitant]
  6. ANAFRANIL [Concomitant]
  7. TYLEX [Concomitant]
  8. CODEINE [Concomitant]
  9. TEGRETOL [Concomitant]
  10. CLONAZEPAM [Concomitant]
  11. CATAFLAM [Concomitant]
  12. AMITRIPTYLINE HCL [Concomitant]
  13. DIMORF (MORPHINE SULFATE) [Concomitant]

REACTIONS (5)
  - CONDITION AGGRAVATED [None]
  - DELIRIUM [None]
  - DRUG INEFFECTIVE [None]
  - DRUG INTERACTION [None]
  - NEURALGIA [None]
